FAERS Safety Report 7540234-0 (Version None)
Quarter: 2011Q2

REPORT INFORMATION
  Report Type: 
  Country: None (occurrence: None)
  Receive Date: 20110610
  Receipt Date: 20110601
  Transmission Date: 20111010
  Serious: Yes (Other)
  Sender: FDA-Public Use
  Company Number: US-ASTRAZENECA-2011SE33910

PATIENT
  Age: 52 Year
  Sex: Female

DRUGS (2)
  1. ZOMIG [Suspect]
     Route: 048
  2. NEXIUM [Suspect]
     Route: 048

REACTIONS (5)
  - MIGRAINE [None]
  - BLINDNESS [None]
  - ABDOMINAL PAIN UPPER [None]
  - DYSPHAGIA [None]
  - DRUG DOSE OMISSION [None]
